FAERS Safety Report 11545379 (Version 1)
Quarter: 2015Q3

REPORT INFORMATION
  Report Type: Spontaneous
  Country: GB (occurrence: GB)
  Receive Date: 20150924
  Receipt Date: 20150924
  Transmission Date: 20151125
  Serious: Yes (Disabling)
  Sender: FDA-Public Use
  Company Number: GB-BANPHARM-20154215

PATIENT
  Age: 24 Year
  Sex: Male
  Weight: 90 kg

DRUGS (8)
  1. OLIVE OIL [Concomitant]
     Active Substance: OLIVE OIL
     Dates: start: 20150818, end: 20150823
  2. IBUPROFEN UNKNOWN PRODUCT [Suspect]
     Active Substance: IBUPROFEN
     Dates: start: 20150902
  3. ERYTHROMYCIN. [Concomitant]
     Active Substance: ERYTHROMYCIN
     Dosage: BID,
     Dates: start: 20150730, end: 20150827
  4. FEXOFENADINE [Concomitant]
     Active Substance: FEXOFENADINE\FEXOFENADINE HYDROCHLORIDE
     Dates: start: 20150514, end: 20150829
  5. LYMECYCLINE [Concomitant]
     Active Substance: LYMECYCLINE
     Dates: start: 20150730, end: 20150827
  6. DICLOFENAC [Concomitant]
     Active Substance: DICLOFENAC
     Dosage: TID,
     Dates: start: 20150824
  7. INTAL [Concomitant]
     Active Substance: CROMOLYN SODIUM
     Dates: start: 20150508, end: 20150605
  8. LORATADINE. [Concomitant]
     Active Substance: LORATADINE
     Dates: start: 20150611, end: 20150709

REACTIONS (1)
  - Swelling face [Not Recovered/Not Resolved]

NARRATIVE: CASE EVENT DATE: 20150902
